FAERS Safety Report 8561938-7 (Version None)
Quarter: 2012Q3

REPORT INFORMATION
  Report Type: 
  Country: None (occurrence: None)
  Receive Date: 20120802
  Receipt Date: 20120723
  Transmission Date: 20120928
  Serious: Yes (Other)
  Sender: FDA-Public Use
  Company Number: HR-BAXTER-2012BAX012548

PATIENT
  Age: 58 Year
  Sex: Male

DRUGS (4)
  1. EXTRANEAL [Suspect]
     Route: 033
     Dates: start: 20110331, end: 20120614
  2. EXTRANEAL [Suspect]
  3. DIANEAL [Suspect]
  4. DIANEAL [Suspect]
     Route: 033
     Dates: start: 20110331, end: 20120614

REACTIONS (3)
  - PERITONITIS BACTERIAL [None]
  - PERITONEAL DIALYSIS COMPLICATION [None]
  - FUNGAL PERITONITIS [None]
